FAERS Safety Report 10019609 (Version 2)
Quarter: 2014Q2

REPORT INFORMATION
  Report Type: Spontaneous
  Country: US (occurrence: US)
  Receive Date: 20140318
  Receipt Date: 20140430
  Transmission Date: 20141212
  Serious: Yes (Other)
  Sender: FDA-Public Use
  Company Number: US-PFIZER INC-2014077054

PATIENT
  Age: 55 Year
  Sex: Female

DRUGS (6)
  1. TIKOSYN [Suspect]
     Indication: ATRIAL FIBRILLATION
     Dosage: UNK
  2. SYNTHROID [Interacting]
     Dosage: 50 UG PER DAY
     Route: 048
     Dates: start: 201311, end: 201402
  3. METOPROLOL [Concomitant]
  4. FUROSEMIDE [Concomitant]
  5. FAMOTIDINE [Concomitant]
  6. CYMBALTA [Concomitant]

REACTIONS (4)
  - Drug interaction [Unknown]
  - Drug ineffective [Unknown]
  - Atrial fibrillation [Recovering/Resolving]
  - Ventricular tachycardia [Unknown]
